FAERS Safety Report 12923207 (Version 1)
Quarter: 2016Q4

REPORT INFORMATION
  Report Type: Report from Study
  Country: BR (occurrence: BR)
  Receive Date: 20161109
  Receipt Date: 20161109
  Transmission Date: 20170207
  Serious: Yes (Other)
  Sender: FDA-Public Use
  Company Number: BR-GLAXOSMITHKLINE-BR2016GSK044940

PATIENT
  Sex: Female
  Weight: 63 kg

DRUGS (1)
  1. BELIMUMAB [Suspect]
     Active Substance: BELIMUMAB
     Indication: SYSTEMIC LUPUS ERYTHEMATOSUS
     Dosage: UNK
     Dates: start: 20150911

REACTIONS (6)
  - Platelet count decreased [Not Recovered/Not Resolved]
  - Inappropriate schedule of drug administration [Unknown]
  - Female sterilisation [Unknown]
  - Drug dose omission [Not Recovered/Not Resolved]
  - Product availability issue [Unknown]
  - Circumstance or information capable of leading to medication error [Unknown]
